FAERS Safety Report 11397585 (Version 1)
Quarter: 2015Q3

REPORT INFORMATION
  Report Type: Spontaneous
  Country: GB (occurrence: GB)
  Receive Date: 20150819
  Receipt Date: 20150819
  Transmission Date: 20151125
  Serious: Yes (Death, Hospitalization)
  Sender: FDA-Public Use
  Company Number: GB-BAYER-2015-402573

PATIENT
  Sex: Female

DRUGS (3)
  1. DIPYRIDAMOLE. [Suspect]
     Active Substance: DIPYRIDAMOLE
  2. CLOPIDOGREL [Suspect]
     Active Substance: CLOPIDOGREL BISULFATE
  3. ACETYLSALICYLIC ACID (} 100 MG) [Suspect]
     Active Substance: ASPIRIN

REACTIONS (1)
  - Haemorrhagic transformation stroke [Fatal]
